FAERS Safety Report 12384954 (Version 1)
Quarter: 2016Q2

REPORT INFORMATION
  Report Type: Report from Study
  Country: JP (occurrence: JP)
  Receive Date: 20160519
  Receipt Date: 20160519
  Transmission Date: 20160815
  Serious: Yes (Hospitalization, Other)
  Sender: FDA-Public Use
  Company Number: JP-ROCHE-1756779

PATIENT
  Age: 74 Year
  Sex: Female

DRUGS (16)
  1. RANIBIZUMAB [Suspect]
     Active Substance: RANIBIZUMAB
     Dosage: 0.05 ML, UNK
     Route: 050
     Dates: start: 20150702
  2. RANIBIZUMAB [Suspect]
     Active Substance: RANIBIZUMAB
     Dosage: 0.05 ML, UNK
     Route: 050
     Dates: start: 20150402
  3. RANIBIZUMAB [Suspect]
     Active Substance: RANIBIZUMAB
     Indication: RETINAL VEIN OCCLUSION
     Dosage: 0.05 ML, UNK
     Route: 050
     Dates: start: 20141218
  4. RANIBIZUMAB [Suspect]
     Active Substance: RANIBIZUMAB
     Dosage: 0.05 ML, UNK
     Route: 050
     Dates: start: 20150507
  5. CRAVIT [Concomitant]
     Active Substance: LEVOFLOXACIN
     Indication: ANTIBIOTIC PROPHYLAXIS
     Dosage: BEFORE AND AFTER LUCENTIS ADMINISTRATION
     Route: 047
     Dates: start: 20141218
  6. CRAVIT [Concomitant]
     Active Substance: LEVOFLOXACIN
     Dosage: BEFORE AND AFTER LUCENTIS ADMINISTRATION
     Route: 047
     Dates: start: 20150305
  7. RANIBIZUMAB [Suspect]
     Active Substance: RANIBIZUMAB
     Dosage: 0.05 ML, UNK
     Route: 050
     Dates: start: 20150305
  8. RANIBIZUMAB [Suspect]
     Active Substance: RANIBIZUMAB
     Dosage: 0.05 ML, UNK
     Route: 050
     Dates: start: 20150806
  9. RANIBIZUMAB [Suspect]
     Active Substance: RANIBIZUMAB
     Dosage: 0.05 ML, UNK
     Route: 050
     Dates: start: 20150903, end: 20150903
  10. CRAVIT [Concomitant]
     Active Substance: LEVOFLOXACIN
     Dosage: BEFORE AND AFTER LUCENTIS ADMINISTRATION
     Route: 047
     Dates: start: 20150604
  11. CRAVIT [Concomitant]
     Active Substance: LEVOFLOXACIN
     Dosage: BEFORE AND AFTER LUCENTIS ADMINISTRATION
     Route: 047
     Dates: start: 20150402
  12. CRAVIT [Concomitant]
     Active Substance: LEVOFLOXACIN
     Dosage: BEFORE AND AFTER LUCENTIS ADMINISTRATION
     Route: 047
     Dates: start: 20150507
  13. CRAVIT [Concomitant]
     Active Substance: LEVOFLOXACIN
     Dosage: BEFORE AND AFTER LUCENTIS ADMINISTRATION
     Route: 047
     Dates: start: 20150702
  14. RANIBIZUMAB [Suspect]
     Active Substance: RANIBIZUMAB
     Dosage: 0.05 ML, UNK
     Route: 050
     Dates: start: 20150604
  15. CRAVIT [Concomitant]
     Active Substance: LEVOFLOXACIN
     Dosage: BEFORE AND AFTER LUCENTIS ADMINISTRATION
     Route: 047
     Dates: start: 20150806
  16. CRAVIT [Concomitant]
     Active Substance: LEVOFLOXACIN
     Dosage: BEFORE AND AFTER LUCENTIS ADMINISTRATION
     Route: 047
     Dates: start: 20150903

REACTIONS (2)
  - Visual acuity reduced [Unknown]
  - Cerebral infarction [Unknown]

NARRATIVE: CASE EVENT DATE: 20150917
